FAERS Safety Report 12431645 (Version 3)
Quarter: 2016Q2

REPORT INFORMATION
  Report Type: Spontaneous
  Country: JP (occurrence: JP)
  Receive Date: 20160603
  Receipt Date: 20160624
  Transmission Date: 20160815
  Serious: Yes (Life-Threatening, Other)
  Sender: FDA-Public Use
  Company Number: JP-ASTRAZENECA-2016SE58167

PATIENT
  Age: 40 Year
  Sex: Female
  Weight: 45 kg

DRUGS (5)
  1. MUCOSTA [Concomitant]
     Active Substance: REBAMIPIDE
  2. MEILAX [Concomitant]
     Active Substance: ETHYL LOFLAZEPATE
     Dosage: DOSE UNKNOWN
     Route: 065
  3. SYMBICORT [Suspect]
     Active Substance: BUDESONIDE\FORMOTEROL FUMARATE DIHYDRATE
     Indication: ASTHMA
     Dosage: 60 DOSES
     Route: 055
     Dates: start: 20160519, end: 20160519
  4. LULLAN [Concomitant]
     Active Substance: PEROSPIRONE HYDROCHLORIDE
  5. BELSOMRA [Concomitant]
     Active Substance: SUVOREXANT

REACTIONS (2)
  - Accidental overdose [Unknown]
  - Anaphylactic shock [Recovering/Resolving]

NARRATIVE: CASE EVENT DATE: 20160519
